FAERS Safety Report 8942341 (Version 1)
Quarter: 2012Q4

REPORT INFORMATION
  Report Type: Spontaneous
  Country: US (occurrence: None)
  Receive Date: 20121123
  Receipt Date: 20121123
  Transmission Date: 20130627
  Serious: Yes (Disabling, Other)
  Sender: FDA-Public Use
  Company Number: 2012P1064892

PATIENT
  Age: 90 Year
  Sex: Male

DRUGS (5)
  1. AMIODARONE [Suspect]
     Indication: ARRHYTHMIA
  2. AMIODARONE [Suspect]
     Indication: ARRHYTHMIA
  3. LEVETIRACETAM [Suspect]
  4. LEVETIRACETAM [Suspect]
  5. DOGOXIN [Concomitant]

REACTIONS (5)
  - Dyskinesia [None]
  - Gait disturbance [None]
  - Hypoacusis [None]
  - Tremor [None]
  - Fatigue [None]
